FAERS Safety Report 10194724 (Version 2)
Quarter: 2014Q2

REPORT INFORMATION
  Report Type: Report from Study
  Country: ES (occurrence: ES)
  Receive Date: 20140526
  Receipt Date: 20140616
  Transmission Date: 20141212
  Serious: Yes (Hospitalization)
  Sender: FDA-Public Use
  Company Number: ES-BRISTOL-MYERS SQUIBB COMPANY-20775219

PATIENT
  Age: 46 Year
  Sex: Female

DRUGS (6)
  1. ORENCIA [Suspect]
     Indication: RHEUMATOID ARTHRITIS
     Dosage: LAST INJ ON 21APR14
     Route: 042
     Dates: start: 201301
  2. METHOTREXATE [Concomitant]
  3. ACFOL [Concomitant]
     Dosage: 1DF= 1 TAB
  4. CARBOCAL D [Concomitant]
  5. DACORTIN [Concomitant]
  6. SIMVASTATIN [Concomitant]

REACTIONS (1)
  - Psychotic disorder [Unknown]
